FAERS Safety Report 6109312-7 (Version None)
Quarter: 2009Q1

REPORT INFORMATION
  Report Type: 
  Country: None (occurrence: None)
  Receive Date: 20090309
  Receipt Date: 20090309
  Transmission Date: 20090719
  Serious: Yes (Life-Threatening, Hospitalization)
  Sender: FDA-Public Use
  Company Number: None

PATIENT
  Age: 67 Year
  Sex: Male
  Weight: 99 kg

DRUGS (2)
  1. IBUPROFEN TABLETS [Suspect]
     Dosage: 200 MG UNKNOWN PO
     Route: 048
     Dates: start: 20090104, end: 20090114
  2. PREDNISONE [Suspect]
     Dosage: 20 MG AM PO
     Route: 048
     Dates: start: 20090104, end: 20090114

REACTIONS (1)
  - GASTRIC HAEMORRHAGE [None]
